FAERS Safety Report 17242345 (Version 1)
Quarter: 2019Q4

REPORT INFORMATION
  Report Type: Spontaneous
  Country: US (occurrence: US)
  Receive Date: 20191212
  Receipt Date: 20191212
  Transmission Date: 20200122
  Serious: No
  Sender: FDA-Public Use
  Company Number: None

PATIENT
  Age: 18 Year
  Sex: Female

DRUGS (1)
  1. ATGAM [Suspect]
     Active Substance: EQUINE THYMOCYTE IMMUNE GLOBULIN
     Indication: APLASTIC ANAEMIA
     Route: 042

REACTIONS (4)
  - Off label use [None]
  - Product packaging quantity issue [None]
  - Product distribution issue [None]
  - Product supply issue [None]

NARRATIVE: CASE EVENT DATE: 20191212
